FAERS Safety Report 6100874-2 (Version None)
Quarter: 2009Q1

REPORT INFORMATION
  Report Type: 
  Country: None (occurrence: None)
  Receive Date: 20090304
  Receipt Date: 20090223
  Transmission Date: 20090719
  Serious: Yes (Other)
  Sender: FDA-Public Use
  Company Number: PHBS2009IT00880

PATIENT
  Age: 50 Year
  Sex: Female

DRUGS (2)
  1. CARBAMAZEPINE [Suspect]
     Indication: TRIGEMINAL NEURALGIA
     Dosage: 600 MG/DAY
  2. CARBAMAZEPINE [Suspect]
     Dosage: 100 MG/DAY

REACTIONS (5)
  - ABASIA [None]
  - CRANIOTOMY [None]
  - DRUG INEFFECTIVE [None]
  - MENINGIOMA [None]
  - VERTIGO [None]
